FAERS Safety Report 21424618 (Version 3)
Quarter: 2023Q4

REPORT INFORMATION
  Report Type: Report from Study
  Country: JP (occurrence: JP)
  Receive Date: 20221007
  Receipt Date: 20231003
  Transmission Date: 20240110
  Serious: Yes (Death, Life-Threatening, Other)
  Sender: FDA-Public Use
  Company Number: JP-CELGENE-JPN-20211201590

PATIENT
  Age: 55 Year
  Sex: Male
  Weight: 59.3 kg

DRUGS (1)
  1. BREYANZI [Suspect]
     Active Substance: LISOCABTAGENE MARALEUCEL
     Indication: High-grade B-cell lymphoma
     Dosage: FREQUENCY TEXT: ONCE?UNKNOWN
     Route: 041
     Dates: start: 20211115, end: 20211115

REACTIONS (7)
  - High-grade B-cell lymphoma [Fatal]
  - Cytokine release syndrome [Recovered/Resolved]
  - Leukopenia [Recovered/Resolved]
  - Hyperkalaemia [Not Recovered/Not Resolved]
  - Renal impairment [Not Recovered/Not Resolved]
  - Anaemia [Unknown]
  - Platelet count decreased [Unknown]

NARRATIVE: CASE EVENT DATE: 20211116
